FAERS Safety Report 19434293 (Version 1)
Quarter: 2021Q2

REPORT INFORMATION
  Report Type: Report from Study
  Country: US (occurrence: US)
  Receive Date: 20210618
  Receipt Date: 20210618
  Transmission Date: 20210717
  Serious: No
  Sender: FDA-Public Use
  Company Number: NVSC2021US125878

PATIENT
  Sex: Male

DRUGS (1)
  1. COSENTYX [Suspect]
     Active Substance: SECUKINUMAB
     Indication: PSORIASIS
     Dosage: 300 MG, QMO (28TH OF EACH MONTH, BENEATH THE SKIN)
     Route: 058
     Dates: start: 202011

REACTIONS (4)
  - Psoriasis [Unknown]
  - Hyperhidrosis [Unknown]
  - Therapeutic product effect decreased [Unknown]
  - Diarrhoea [Recovered/Resolved]
